FAERS Safety Report 7276469-4 (Version None)
Quarter: 2011Q1

REPORT INFORMATION
  Report Type: 
  Country: None (occurrence: None)
  Receive Date: 20110204
  Receipt Date: 20110203
  Transmission Date: 20110831
  Serious: Yes (Hospitalization, Other)
  Sender: FDA-Public Use
  Company Number: ES-ABBOTT-11P-144-0702053-00

PATIENT
  Age: 19 Year
  Sex: Male

DRUGS (3)
  1. HUMIRA [Suspect]
     Indication: CROHN'S DISEASE
     Route: 058
  2. HUMIRA [Suspect]
     Route: 058
     Dates: end: 20101001
  3. AZATIOPRINE [Concomitant]
     Indication: CROHN'S DISEASE
     Dates: start: 20070101

REACTIONS (5)
  - ANAL FISTULA [None]
  - DRUG INEFFECTIVE [None]
  - ANAL ABSCESS [None]
  - ANAL STENOSIS [None]
  - COLONIC STENOSIS [None]
